FAERS Safety Report 6525442-X (Version None)
Quarter: 2010Q1

REPORT INFORMATION
  Report Type: 
  Country: None (occurrence: None)
  Receive Date: 20100104
  Receipt Date: 20091223
  Transmission Date: 20100710
  Serious: Yes (Other)
  Sender: FDA-Public Use
  Company Number: CHPA2009US24230

PATIENT
  Sex: Male

DRUGS (3)
  1. VOLTAREN [Suspect]
     Dosage: UNK, UNK
     Route: 061
  2. IBUPROFEN [Suspect]
     Dosage: UNK, UNK
     Route: 048
  3. ACETYLSALICYLIC ACID [Suspect]
     Dosage: UNK, UNK
     Route: 048

REACTIONS (2)
  - RADIATION SKIN INJURY [None]
  - RECTAL HAEMORRHAGE [None]
